FAERS Safety Report 4440307-5 (Version None)
Quarter: 2004Q3

REPORT INFORMATION
  Report Type: 
  Country: None (occurrence: None)
  Receive Date: 20040831
  Receipt Date: 20040831
  Transmission Date: 20050211
  Serious: Yes (Other)
  Sender: FDA-Public Use
  Company Number: None

PATIENT
  Sex: Female
  Weight: 100.2449 kg

DRUGS (16)
  1. TRILEPTAL [Suspect]
     Indication: DEPRESSION
     Dosage: 300 MG 2 T QAM, 3T ORAL
     Route: 048
     Dates: start: 20020513, end: 20040804
  2. OXYCONTIN [Concomitant]
  3. IRON SULFATETHIAMIN COMPOUND TAB [Concomitant]
  4. IMURAN [Concomitant]
  5. REGLAN [Concomitant]
  6. ZANTAC [Concomitant]
  7. ULTRAM [Concomitant]
  8. PREVACID [Concomitant]
  9. CELEXA [Concomitant]
  10. LIPITOR [Concomitant]
  11. PLAQUENIL [Concomitant]
  12. HYZAAR [Concomitant]
  13. LODINE [Concomitant]
  14. SEROQUEL [Concomitant]
  15. LASIX [Concomitant]
  16. FLEXERIL [Concomitant]

REACTIONS (3)
  - FATIGUE [None]
  - HEADACHE [None]
  - HYPONATRAEMIA [None]
